FAERS Safety Report 6704069-0 (Version None)
Quarter: 2010Q2

REPORT INFORMATION
  Report Type: 
  Country: None (occurrence: None)
  Receive Date: 20100430
  Receipt Date: 20100301
  Transmission Date: 20101027
  Serious: No
  Sender: FDA-Public Use
  Company Number: US-BAYER-201015527NA

PATIENT
  Sex: Female

DRUGS (3)
  1. LEUKINE [Suspect]
     Indication: COLONY STIMULATING FACTOR THERAPY
     Dosage: RECEIVES LEUKINE DAILY FOR 7 DAYS 3RD DAY AFTER CHEMOTHERAPY
     Dates: start: 20091201
  2. CHEMOTHERAPY [Concomitant]
     Indication: COLON CANCER
     Dosage: RECEIVES TREATMENT EVERY 2 OR 3 WEEKS-TOTAL OF 5 OR 6 TREATMENTS SO FAR
     Dates: start: 20091201
  3. FLUOROURACIL [Concomitant]
     Indication: COLON CANCER

REACTIONS (1)
  - FATIGUE [None]
